FAERS Safety Report 6616758-7 (Version None)
Quarter: 2010Q1

REPORT INFORMATION
  Report Type: 
  Country: None (occurrence: None)
  Receive Date: 20100305
  Receipt Date: 20100222
  Transmission Date: 20100710
  Serious: Yes (Life-Threatening, Hospitalization)
  Sender: FDA-Public Use
  Company Number: JP-ABBOTT-10P-087-0621630-00

PATIENT
  Sex: Male
  Weight: 62.8 kg

DRUGS (17)
  1. HUMIRA [Suspect]
     Indication: RHEUMATOID ARTHRITIS
     Route: 058
     Dates: start: 20091224, end: 20100121
  2. METHOTREXATE [Suspect]
     Indication: RHEUMATOID ARTHRITIS
     Route: 048
     Dates: start: 20091104, end: 20100121
  3. FOLIC ACID [Concomitant]
     Indication: ADVERSE EVENT
     Route: 048
     Dates: start: 20091104, end: 20100121
  4. FOLIC ACID [Concomitant]
     Indication: PROPHYLAXIS
  5. CELECOXIB [Concomitant]
     Indication: RHEUMATOID ARTHRITIS
     Route: 048
     Dates: start: 20091104
  6. TEPRENONE [Concomitant]
     Indication: ADVERSE EVENT
     Route: 048
     Dates: start: 20091104
  7. TEPRENONE [Concomitant]
     Indication: PROPHYLAXIS
  8. VALSARTAN [Concomitant]
     Indication: DRUG USE FOR UNKNOWN INDICATION
     Route: 048
     Dates: start: 20100130
  9. PIOGLITAZONE HCL [Concomitant]
     Indication: DRUG USE FOR UNKNOWN INDICATION
     Route: 048
  10. FAMOTIDINE [Concomitant]
     Indication: PROPHYLAXIS
     Route: 048
     Dates: start: 20100130
  11. FAMOTIDINE [Concomitant]
     Indication: ADVERSE EVENT
  12. VOGLIBOSE [Concomitant]
     Indication: DRUG USE FOR UNKNOWN INDICATION
     Route: 048
  13. ISONIAZID [Concomitant]
     Indication: DRUG USE FOR UNKNOWN INDICATION
     Route: 048
     Dates: start: 20091211
  14. PYRIDOXICAL PHOSPHATE HYDRATE [Concomitant]
     Indication: DRUG USE FOR UNKNOWN INDICATION
     Route: 048
     Dates: start: 20091211
  15. INSULIN ASPART [Concomitant]
     Indication: DRUG USE FOR UNKNOWN INDICATION
     Route: 058
     Dates: start: 20100121, end: 20100123
  16. RABEPRAZOLE SODIUM [Concomitant]
     Indication: PROPHYLAXIS
     Route: 048
     Dates: start: 20100130
  17. RABEPRAZOLE SODIUM [Concomitant]
     Indication: ADVERSE EVENT

REACTIONS (7)
  - ARTHRALGIA [None]
  - ARTHRITIS [None]
  - DIABETES MELLITUS INADEQUATE CONTROL [None]
  - DYSSTASIA [None]
  - GAIT DISTURBANCE [None]
  - PNEUMOCYSTIS JIROVECI PNEUMONIA [None]
  - RHEUMATOID ARTHRITIS [None]
